FAERS Safety Report 8681335 (Version 3)
Quarter: 2012Q4

REPORT INFORMATION
  Report Type: 
  Country: US (occurrence: US)
  Receive Date: 20120725
  Receipt Date: 20120904
  Transmission Date: 20130627
  Serious: Yes (Other)
  Sender: FDA-Public Use
  Company Number: US-SANOFI-AVENTIS-2012SA050338

PATIENT
  Age: 71 Year
  Sex: Female
  Weight: 58.96 kg

DRUGS (11)
  1. LANTUS [Suspect]
     Indication: DIABETES
     Route: 058
     Dates: start: 2007, end: 2009
  2. LANTUS [Suspect]
     Indication: DIABETES
     Dosage: Dose:6 unit(s)
     Route: 058
     Dates: start: 2012
  3. LANTUS [Suspect]
     Indication: DIABETES
     Dosage: Dose:15 unit(s)
     Route: 058
     Dates: start: 20120523
  4. SOLOSTAR [Suspect]
     Indication: DIABETES
     Dates: start: 2007, end: 2009
  5. SOLOSTAR [Suspect]
     Indication: DIABETES
     Dates: start: 2012
  6. OXYCODONE [Concomitant]
     Indication: PAIN
     Dates: start: 20100312
  7. VITAMIN B12 [Concomitant]
     Indication: ANEMIC
  8. FERROUS GLUCONATE [Concomitant]
     Indication: ANEMIC
  9. ASPIRIN [Concomitant]
     Indication: PROPHYLAXIS
  10. METOPROLOL TARTRATE [Concomitant]
     Indication: BLOOD PRESSURE HIGH
     Dates: start: 20100310
  11. IRON [Concomitant]
     Indication: ANEMIC
     Dates: start: 20100310

REACTIONS (2)
  - Colon cancer [Unknown]
  - Weight decreased [Unknown]
